FAERS Safety Report 5337658-9 (Version None)
Quarter: 2007Q2

REPORT INFORMATION
  Report Type: 
  Country: None (occurrence: None)
  Receive Date: 20070315
  Receipt Date: 20060605
  Transmission Date: 20071010
  Serious: Yes (Other)
  Sender: FDA-Public Use
  Company Number: PHEH2006US07294

PATIENT
  Age: 31 Year
  Sex: Male

DRUGS (1)
  1. TRILEPTAL [Suspect]
     Indication: CONVULSION
     Dosage: 1800 MG, QD, ORAL
     Route: 048
     Dates: start: 20050101

REACTIONS (1)
  - NEPHROLITHIASIS [None]
